FAERS Safety Report 4690973-4 (Version None)
Quarter: 2005Q2

REPORT INFORMATION
  Report Type: 
  Country: None (occurrence: None)
  Receive Date: 20050610
  Receipt Date: 20050603
  Transmission Date: 20051028
  Serious: Yes (Death)
  Sender: FDA-Public Use
  Company Number: J081-002-001971

PATIENT
  Age: 81 Year
  Sex: Female

DRUGS (5)
  1. ARICEPT [Suspect]
     Indication: DEMENTIA ALZHEIMER'S TYPE
     Dosage: 3 MG, 1 IN 1 D, ORAL
     Route: 048
     Dates: start: 20050526, end: 20050531
  2. SERMION (NICERGOLINE) [Suspect]
     Indication: CEREBRAL INFARCTION
     Dosage: ORAL
     Route: 048
     Dates: start: 20050510, end: 20050601
  3. NAUZELIN (DOMPERIDONE) [Suspect]
     Indication: NAUSEA
     Dosage: ORAL
     Route: 048
     Dates: start: 20050601, end: 20050601
  4. DEPAS (ETIZOLAM) [Concomitant]
  5. ESTAZOLAM [Concomitant]

REACTIONS (4)
  - ABDOMINAL PAIN UPPER [None]
  - PERIPHERAL COLDNESS [None]
  - TREMOR [None]
  - VOMITING [None]
